FAERS Safety Report 6682916-9 (Version None)
Quarter: 2010Q2

REPORT INFORMATION
  Report Type: 
  Country: None (occurrence: None)
  Receive Date: 20100415
  Receipt Date: 20100408
  Transmission Date: 20101027
  Serious: Yes (Hospitalization)
  Sender: FDA-Public Use
  Company Number: B0647153A

PATIENT
  Sex: Male

DRUGS (15)
  1. ALKERAN [Suspect]
     Indication: NON-HODGKIN'S LYMPHOMA
     Dosage: 270MG PER DAY
     Route: 042
     Dates: start: 20100113, end: 20100113
  2. CARMUSTINE [Suspect]
     Indication: NON-HODGKIN'S LYMPHOMA
     Dosage: 380MG PER DAY
     Route: 042
     Dates: start: 20100108, end: 20100108
  3. VEPESID [Suspect]
     Indication: NON-HODGKIN'S LYMPHOMA
     Dosage: 390MG PER DAY
     Route: 042
     Dates: start: 20100109, end: 20100112
  4. ARACYTIN [Suspect]
     Indication: NON-HODGKIN'S LYMPHOMA
     Dosage: 780MG PER DAY
     Route: 042
     Dates: start: 20100109, end: 20100112
  5. ZOVIRAX [Concomitant]
     Indication: DRUG USE FOR UNKNOWN INDICATION
     Dosage: 1200MG PER DAY
     Route: 048
  6. ISENTRESS [Concomitant]
     Indication: DRUG USE FOR UNKNOWN INDICATION
     Dosage: 800MG PER DAY
     Route: 048
  7. NORVIR [Concomitant]
     Indication: DRUG USE FOR UNKNOWN INDICATION
     Dosage: 200MG PER DAY
     Route: 048
  8. PREZISTA [Concomitant]
     Indication: DRUG USE FOR UNKNOWN INDICATION
     Route: 065
  9. MARAVIROC [Concomitant]
     Indication: DRUG USE FOR UNKNOWN INDICATION
     Route: 048
  10. DIFLUCAN [Concomitant]
     Indication: DRUG USE FOR UNKNOWN INDICATION
     Dosage: 200MG PER DAY
     Route: 048
  11. BACTRIM [Concomitant]
     Indication: DRUG USE FOR UNKNOWN INDICATION
     Dosage: 1920MG PER DAY
     Route: 048
  12. KCL RETARD [Concomitant]
     Indication: DRUG USE FOR UNKNOWN INDICATION
     Dosage: 2400MG PER DAY
     Route: 048
  13. CONTRAMAL [Concomitant]
     Indication: DRUG USE FOR UNKNOWN INDICATION
     Dosage: 15DROP PER DAY
     Route: 048
  14. LEVOXACIN [Concomitant]
     Indication: DRUG USE FOR UNKNOWN INDICATION
     Dosage: 500MG PER DAY
     Route: 048
  15. SPORANOX [Concomitant]
     Indication: DRUG USE FOR UNKNOWN INDICATION
     Dosage: 40ML PER DAY
     Route: 048

REACTIONS (2)
  - MUCOSAL INFLAMMATION [None]
  - NAUSEA [None]
